FAERS Safety Report 15227161 (Version 2)
Quarter: 2019Q4

REPORT INFORMATION
  Report Type: Spontaneous
  Country: US (occurrence: US)
  Receive Date: 20180801
  Receipt Date: 20191226
  Transmission Date: 20200122
  Serious: Yes (Other)
  Sender: FDA-Public Use
  Company Number: US-ELI_LILLY_AND_COMPANY-US201807010739

PATIENT
  Age: 46 Year
  Sex: Male

DRUGS (7)
  1. HUMALOG [Suspect]
     Active Substance: INSULIN LISPRO
     Indication: TYPE 1 DIABETES MELLITUS
     Dosage: UNK, UNKNOWN
     Route: 058
  2. TOUJEO [Suspect]
     Active Substance: INSULIN GLARGINE
     Indication: PRODUCT USED FOR UNKNOWN INDICATION
     Dosage: U
     Route: 065
  3. HUMALOG [Suspect]
     Active Substance: INSULIN LISPRO
     Dosage: UNK, UNKNOWN
     Route: 058
     Dates: start: 201905
  4. LANTUS [Concomitant]
     Active Substance: INSULIN GLARGINE
     Indication: TYPE 1 DIABETES MELLITUS
     Dosage: 20 U, BID
  5. HUMALOG [Suspect]
     Active Substance: INSULIN LISPRO
     Dosage: UNK, UNKNOWN
     Route: 058
  6. TRESIBA [Suspect]
     Active Substance: INSULIN DEGLUDEC
     Indication: PRODUCT USED FOR UNKNOWN INDICATION
     Dosage: UNK, UNKNOWN
     Route: 065
  7. HUMALOG KWIKPEN [Suspect]
     Active Substance: INSULIN LISPRO
     Indication: TYPE 1 DIABETES MELLITUS
     Dosage: UNK, PRN
     Route: 058
     Dates: start: 20191213

REACTIONS (13)
  - Muscle spasms [Recovered/Resolved]
  - Glycosylated haemoglobin decreased [Recovered/Resolved]
  - Glycosylated haemoglobin increased [Unknown]
  - Injury [Unknown]
  - Blood glucose decreased [Recovered/Resolved]
  - Paralysis [Recovered/Resolved]
  - Herpes zoster [Recovering/Resolving]
  - Blood glucose increased [Recovering/Resolving]
  - Appetite disorder [Unknown]
  - Visual impairment [Recovered/Resolved]
  - Stress [Not Recovered/Not Resolved]
  - Blood glucose increased [Recovering/Resolving]
  - Night sweats [Recovered/Resolved]

NARRATIVE: CASE EVENT DATE: 20191217
